FAERS Safety Report 23904408 (Version 1)
Quarter: 2024Q2

REPORT INFORMATION
  Report Type: Spontaneous
  Country: US (occurrence: None)
  Receive Date: 20240527
  Receipt Date: 20240527
  Transmission Date: 20240715
  Serious: Yes (Hospitalization, Other)
  Sender: FDA-Public Use
  Company Number: US-Unichem Pharmaceuticals (USA) Inc-UCM202405-000566

PATIENT
  Age: 39 Year
  Sex: Male

DRUGS (1)
  1. AMLODIPINE [Suspect]
     Active Substance: AMLODIPINE BESYLATE
     Indication: Hypertension
     Dosage: 80 TABLETS

REACTIONS (10)
  - Lactic acidosis [Recovered/Resolved]
  - Respiratory failure [Recovered/Resolved]
  - Acute kidney injury [Recovered/Resolved]
  - Lung infiltration [Recovered/Resolved]
  - Renal failure [Recovered/Resolved]
  - Capillary leak syndrome [Recovered/Resolved]
  - Distributive shock [Recovered/Resolved]
  - Acute respiratory distress syndrome [Recovered/Resolved]
  - Suicide attempt [Unknown]
  - Intentional overdose [Unknown]
